FAERS Safety Report 10753791 (Version 8)
Quarter: 2019Q3

REPORT INFORMATION
  Report Type: Report from Study
  Country: BR (occurrence: BR)
  Receive Date: 20150201
  Receipt Date: 20190927
  Transmission Date: 20191004
  Serious: Yes (Hospitalization, Other)
  Sender: FDA-Public Use
  Company Number: BR-ROCHE-1088056

PATIENT
  Age: 61 Year
  Sex: Female
  Weight: 81 kg

DRUGS (19)
  1. PURAN [Concomitant]
     Active Substance: LEVOTHYROXINE SODIUM
     Route: 065
  2. ACLASTA [Concomitant]
     Active Substance: ZOLEDRONIC ACID
     Indication: OSTEOPOROSIS
     Route: 065
  3. ACTEMRA [Suspect]
     Active Substance: TOCILIZUMAB
     Route: 042
     Dates: start: 20180606
  4. METFORMIN [Concomitant]
     Active Substance: METFORMIN HYDROCHLORIDE
  5. DEPURA [Concomitant]
     Active Substance: CHOLECALCIFEROL
     Route: 065
  6. ACTEMRA [Suspect]
     Active Substance: TOCILIZUMAB
     Indication: RHEUMATOID ARTHRITIS
     Route: 042
     Dates: start: 20120130
  7. TECNOMET [METHOTREXATE] [Concomitant]
     Active Substance: METHOTREXATE
  8. CELEBRA [Concomitant]
     Active Substance: CELECOXIB
     Indication: PAIN
     Route: 048
  9. ENDOFOLIN [Concomitant]
     Active Substance: FOLIC ACID
     Route: 048
  10. SYNTHROID [Concomitant]
     Active Substance: LEVOTHYROXINE SODIUM
     Dosage: ONE TABLET IN FASTING
     Route: 048
  11. SIMVASTATIN. [Concomitant]
     Active Substance: SIMVASTATIN
  12. METFORMIN [Concomitant]
     Active Substance: METFORMIN HYDROCHLORIDE
     Route: 048
  13. GLIMEPIRIDE. [Concomitant]
     Active Substance: GLIMEPIRIDE
     Route: 048
  14. CELEBRA [Concomitant]
     Active Substance: CELECOXIB
     Indication: ARTHRITIS
  15. AMARYL [Concomitant]
     Active Substance: GLIMEPIRIDE
  16. ACTEMRA [Suspect]
     Active Substance: TOCILIZUMAB
     Route: 042
     Dates: start: 20170926
  17. JANUVIA [Concomitant]
     Active Substance: SITAGLIPTIN PHOSPHATE
  18. METHOTREXATE. [Concomitant]
     Active Substance: METHOTREXATE
     Indication: RHEUMATOID ARTHRITIS
     Route: 065
  19. DIAMICRON [Concomitant]
     Active Substance: GLICLAZIDE
     Indication: DIABETES MELLITUS

REACTIONS (38)
  - Weight increased [Unknown]
  - Syncope [Unknown]
  - Diabetes mellitus inadequate control [Not Recovered/Not Resolved]
  - Gastric disorder [Unknown]
  - Dermatitis contact [Unknown]
  - Weight decreased [Recovered/Resolved]
  - Dysgeusia [Unknown]
  - Abdominal discomfort [Unknown]
  - Cerebrovascular accident [Unknown]
  - Loss of consciousness [Unknown]
  - Pruritus [Unknown]
  - Arthropathy [Not Recovered/Not Resolved]
  - Malabsorption [Not Recovered/Not Resolved]
  - Dizziness [Recovered/Resolved]
  - Immunodeficiency [Unknown]
  - Cystitis [Recovered/Resolved]
  - Fall [Unknown]
  - Musculoskeletal pain [Recovering/Resolving]
  - Back pain [Recovering/Resolving]
  - Diabetes mellitus [Recovered/Resolved]
  - Drug hypersensitivity [Not Recovered/Not Resolved]
  - Sluggishness [Recovered/Resolved]
  - Insomnia [Unknown]
  - Joint range of motion decreased [Recovering/Resolving]
  - Hiatus hernia [Unknown]
  - Transient ischaemic attack [Unknown]
  - Urinary tract infection bacterial [Unknown]
  - Urinary tract infection [Unknown]
  - Mastication disorder [Recovering/Resolving]
  - Vertigo [Unknown]
  - Transient ischaemic attack [Unknown]
  - Vomiting [Recovered/Resolved]
  - Weight increased [Recovered/Resolved]
  - Hunger [Unknown]
  - Wound [Unknown]
  - Nausea [Unknown]
  - Cystitis [Unknown]
  - Malaise [Recovered/Resolved]

NARRATIVE: CASE EVENT DATE: 2014
